FAERS Safety Report 12180616 (Version 1)
Quarter: 2016Q1

REPORT INFORMATION
  Report Type: Spontaneous
  Country: US (occurrence: US)
  Receive Date: 20160315
  Receipt Date: 20160315
  Transmission Date: 20160526
  Serious: Yes (Other)
  Sender: FDA-Public Use
  Company Number: US-GLAXOSMITHKLINE-US2016GSK034239

PATIENT
  Sex: Female

DRUGS (2)
  1. LAMICTAL [Suspect]
     Active Substance: LAMOTRIGINE
     Indication: SEIZURE
  2. LAMICTAL [Suspect]
     Active Substance: LAMOTRIGINE
     Dosage: 150 MG, U

REACTIONS (8)
  - Ill-defined disorder [Unknown]
  - Subdural haematoma [Unknown]
  - Memory impairment [Unknown]
  - Drug dose omission [Unknown]
  - Head injury [Unknown]
  - Seizure [Unknown]
  - Facial bones fracture [Unknown]
  - Fall [Unknown]
